FAERS Safety Report 5973424-9 (Version None)
Quarter: 2008Q4

REPORT INFORMATION
  Report Type: 
  Country: None (occurrence: None)
  Receive Date: 20081201
  Receipt Date: 20081125
  Transmission Date: 20090506
  Serious: Yes (Other)
  Sender: FDA-Public Use
  Company Number: US-ASTRAZENECA-2008UW10891

PATIENT
  Age: 62 Year
  Sex: Male

DRUGS (6)
  1. CRESTOR [Suspect]
     Indication: HYPERCHOLESTEROLAEMIA
     Route: 048
     Dates: start: 20060101
  2. CRESTOR [Suspect]
     Indication: ARTERIOSCLEROSIS
     Route: 048
     Dates: start: 20060101
  3. BYETTA [Concomitant]
  4. DIGOXIN [Concomitant]
  5. LYRICA [Concomitant]
  6. NOITRIPTYLINE [Concomitant]

REACTIONS (2)
  - NEUROPATHY PERIPHERAL [None]
  - WEIGHT DECREASED [None]
